FAERS Safety Report 5144850-5 (Version None)
Quarter: 2006Q4

REPORT INFORMATION
  Report Type: 
  Country: None (occurrence: None)
  Receive Date: 20061107
  Receipt Date: 20060228
  Transmission Date: 20070319
  Serious: Yes (Hospitalization)
  Sender: FDA-Public Use
  Company Number: US-BAYER-200611179BWH

PATIENT
  Age: 63 Year
  Sex: Male
  Weight: 70 kg

DRUGS (15)
  1. SORAFENIB [Suspect]
     Indication: METASTATIC RENAL CELL CARCINOMA
     Dosage: TOTAL DAILY DOSE: 800 MG  UNIT DOSE: 200 MG
     Route: 048
     Dates: end: 20060628
  2. SORAFENIB [Suspect]
     Dosage: TOTAL DAILY DOSE: 800 MG  UNIT DOSE: 200 MG
     Route: 048
     Dates: start: 20051011, end: 20060201
  3. PROTONIX [Concomitant]
     Route: 048
  4. ASACOL [Concomitant]
     Indication: COLITIS
     Route: 048
  5. ASACOL [Concomitant]
     Route: 048
  6. CENTRUM VITAMIN [Concomitant]
     Route: 048
  7. NORVASC [Concomitant]
     Indication: HYPERTENSION
     Route: 048
     Dates: start: 20051024, end: 20060513
  8. HYDROCHLOROTHIAZIDE [Concomitant]
     Indication: HYPERTENSION
     Route: 048
     Dates: start: 20051024
  9. KETOCONAZOLE [Concomitant]
     Indication: RASH
     Route: 061
  10. MOTRIN [Concomitant]
     Indication: PAIN
     Route: 048
  11. VICODIN [Concomitant]
     Indication: PAIN
     Route: 048
  12. LIPITOR [Concomitant]
  13. LISINOPRIL [Concomitant]
     Indication: HYPERTENSION
     Dates: start: 20051017, end: 20051024
  14. CORTISONE OINTMENT [Concomitant]
     Indication: RASH
     Route: 061
     Dates: start: 20051024, end: 20051231
  15. GOLD BOND LOTION [Concomitant]
     Indication: DRY SKIN
     Route: 061
     Dates: start: 20051207

REACTIONS (11)
  - ALOPECIA [None]
  - ASTHENIA [None]
  - BLOOD CHOLESTEROL INCREASED [None]
  - BLOOD PRESSURE INCREASED [None]
  - DIARRHOEA [None]
  - DRY SKIN [None]
  - FATIGUE [None]
  - GASTROOESOPHAGEAL REFLUX DISEASE [None]
  - HYPOTENSION [None]
  - PERICARDIAL EFFUSION [None]
  - SKIN ULCER [None]
